FAERS Safety Report 4407282-0 (Version None)
Quarter: 2004Q3

REPORT INFORMATION
  Report Type: 
  Country: None (occurrence: None)
  Receive Date: 20040721
  Receipt Date: 20040706
  Transmission Date: 20050211
  Serious: Yes (Other)
  Sender: FDA-Public Use
  Company Number: 701940

PATIENT
  Age: 27 Year
  Sex: Male
  Weight: 92.0802 kg

DRUGS (1)
  1. AMEVIVE [Suspect]
     Indication: PSORIASIS
     Dosage: 15 MG QW IM
     Route: 030
     Dates: start: 20040301

REACTIONS (4)
  - HYDRONEPHROSIS [None]
  - RENAL IMPAIRMENT [None]
  - URETERIC OBSTRUCTION [None]
  - URETERIC STENOSIS [None]
